FAERS Safety Report 7605442-9 (Version None)
Quarter: 2011Q3

REPORT INFORMATION
  Report Type: 
  Country: None (occurrence: None)
  Receive Date: 20110713
  Receipt Date: 20110711
  Transmission Date: 20111222
  Serious: No
  Sender: FDA-Public Use
  Company Number: US-PFIZER INC-2011156840

PATIENT
  Age: 37 Year
  Sex: Female

DRUGS (3)
  1. MENOPUR [Suspect]
     Indication: INFERTILITY
     Dosage: UNK
     Dates: start: 20110619
  2. BRAVELLE [Suspect]
     Indication: INFERTILITY
     Dosage: UNK
     Dates: start: 20110619
  3. CELEBREX [Suspect]
     Dosage: UNK

REACTIONS (1)
  - PRURITUS [None]
